FAERS Safety Report 7807439-2 (Version None)
Quarter: 2011Q4

REPORT INFORMATION
  Report Type: 
  Country: None (occurrence: None)
  Receive Date: 20111011
  Receipt Date: 20110930
  Transmission Date: 20120403
  Serious: Yes (Other)
  Sender: FDA-Public Use
  Company Number: PHEH2010US03488

PATIENT
  Sex: Female

DRUGS (9)
  1. PEPCID [Concomitant]
  2. AREDIA [Suspect]
  3. MORPHINE [Concomitant]
  4. CLARITHROMYCIN [Concomitant]
  5. AMOXICILLIN [Concomitant]
  6. RANITIDINE [Concomitant]
  7. PANTOPRAZOLE [Concomitant]
  8. PAMIDRONATE DISODIUM [Suspect]
  9. TYLENOL-500 [Concomitant]

REACTIONS (28)
  - HYPERCHOLESTEROLAEMIA [None]
  - ANAEMIA [None]
  - HIATUS HERNIA [None]
  - ARTHRALGIA [None]
  - ARTHRITIS [None]
  - CATARACT [None]
  - OSTEOPOROSIS [None]
  - HAEMATEMESIS [None]
  - MULTIPLE MYELOMA [None]
  - GASTRITIS [None]
  - DYSPEPSIA [None]
  - ESSENTIAL HYPERTENSION [None]
  - DIVERTICULUM [None]
  - GENERAL PHYSICAL HEALTH DETERIORATION [None]
  - HELICOBACTER INFECTION [None]
  - GASTROOESOPHAGEAL REFLUX DISEASE [None]
  - OSTEOARTHRITIS [None]
  - CONSTIPATION [None]
  - OSTEONECROSIS OF JAW [None]
  - PAIN [None]
  - INJURY [None]
  - PEPTIC ULCER [None]
  - UPPER GASTROINTESTINAL HAEMORRHAGE [None]
  - DYSPNOEA [None]
  - DISABILITY [None]
  - ANXIETY [None]
  - ANHEDONIA [None]
  - DYSPHAGIA [None]
